FAERS Safety Report 14678106 (Version 1)
Quarter: 2018Q1

REPORT INFORMATION
  Report Type: Spontaneous
  Country: US (occurrence: US)
  Receive Date: 20180326
  Receipt Date: 20180326
  Transmission Date: 20180509
  Serious: No
  Sender: FDA-Public Use
  Company Number: US-ELI_LILLY_AND_COMPANY-US201803008106

PATIENT
  Age: 73 Year
  Sex: Female

DRUGS (3)
  1. VERZENIO [Suspect]
     Active Substance: ABEMACICLIB
     Indication: BREAST CANCER
     Dosage: 150 MG, BID
     Route: 048
     Dates: start: 201802
  2. FULVESTRANT. [Concomitant]
     Active Substance: FULVESTRANT
     Indication: BREAST CANCER
  3. VERZENIO [Suspect]
     Active Substance: ABEMACICLIB
     Dosage: 150 MG, DAILY
     Route: 048
     Dates: start: 20180223

REACTIONS (6)
  - Lacrimation increased [Not Recovered/Not Resolved]
  - Dry eye [Not Recovered/Not Resolved]
  - Stomatitis [Not Recovered/Not Resolved]
  - Diarrhoea [Recovering/Resolving]
  - Stomatitis [Recovered/Resolved]
  - Vision blurred [Not Recovered/Not Resolved]

NARRATIVE: CASE EVENT DATE: 201802
